FAERS Safety Report 8404168-1 (Version None)
Quarter: 2012Q2

REPORT INFORMATION
  Report Type: 
  Country: None (occurrence: None)
  Receive Date: 20120601
  Receipt Date: 20120531
  Transmission Date: 20120825
  Serious: Yes (Life-Threatening)
  Sender: FDA-Public Use
  Company Number: GXKR2012DE001887

PATIENT
  Age: 72 Year
  Sex: Male
  Weight: 70 kg

DRUGS (3)
  1. BRILINTA [Suspect]
     Indication: ACUTE MYOCARDIAL INFARCTION
     Route: 048
     Dates: start: 20111213, end: 20111215
  2. ACETYLSALICYLIC ACID SRT [Suspect]
     Indication: ACUTE MYOCARDIAL INFARCTION
     Route: 048
  3. FRAXIPARINE [Suspect]
     Indication: ACUTE MYOCARDIAL INFARCTION
     Route: 058
     Dates: start: 20111213, end: 20111215

REACTIONS (1)
  - HAEMOGLOBIN S DECREASED [None]
